FAERS Safety Report 25631924 (Version 1)
Quarter: 2025Q3

REPORT INFORMATION
  Report Type: Spontaneous
  Country: EU (occurrence: EU)
  Receive Date: 20250801
  Receipt Date: 20250801
  Transmission Date: 20251020
  Serious: Yes (Hospitalization, Other)
  Sender: JOHNSON AND JOHNSON
  Company Number: None

PATIENT
  Age: 59 Year
  Sex: Male

DRUGS (9)
  1. ITRACONAZOLE [Suspect]
     Active Substance: ITRACONAZOLE
     Indication: Product used for unknown indication
     Dosage: 400MG DAILY
  2. ITRACONAZOLE [Suspect]
     Active Substance: ITRACONAZOLE
     Indication: Phaeohyphomycosis
     Dosage: 300 MILLIGRAM DAILY;
  3. ITRACONAZOLE [Suspect]
     Active Substance: ITRACONAZOLE
     Indication: Phaeohyphomycosis
  4. MYCOPHENOLIC ACID [Suspect]
     Active Substance: MYCOPHENOLIC ACID
     Indication: Renal transplant
     Dosage: 2 G DAILY
  5. PREDNISONE [Suspect]
     Active Substance: PREDNISONE
     Indication: Renal transplant
     Dosage: 10 MG DAILY
  6. POSACONAZOLE [Interacting]
     Active Substance: POSACONAZOLE
     Indication: Phaeohyphomycosis
  7. TACROLIMUS [Interacting]
     Active Substance: TACROLIMUS
     Indication: Renal transplant
     Dosage: 3.5 G DAILY
  8. TACROLIMUS [Interacting]
     Active Substance: TACROLIMUS
     Indication: Immunosuppressant drug therapy
  9. AMOXICILLIN\CLAVULANIC ACID [Concomitant]
     Active Substance: AMOXICILLIN\CLAVULANIC ACID
     Indication: Phaeohyphomycosis

REACTIONS (10)
  - Joint swelling [Recovered/Resolved]
  - Arthralgia [Recovered/Resolved]
  - Abscess [Recovering/Resolving]
  - Immunosuppressant drug level increased [Recovered/Resolved]
  - Labelled drug-drug interaction medication error [Recovered/Resolved]
  - Drug interaction [Recovered/Resolved]
  - Pain [Recovering/Resolving]
  - Purulent discharge [Recovered/Resolved]
  - Phaeohyphomycosis [Recovered/Resolved]
  - Condition aggravated [Recovering/Resolving]
